FAERS Safety Report 4967830-9 (Version None)
Quarter: 2006Q2

REPORT INFORMATION
  Report Type: 
  Country: None (occurrence: None)
  Receive Date: 20060410
  Receipt Date: 20060313
  Transmission Date: 20061013
  Serious: Yes (Death, Hospitalization)
  Sender: FDA-Public Use
  Company Number: CM-MERCK-0603USA02185

PATIENT
  Age: 18 Year
  Sex: Male

DRUGS (1)
  1. STROMECTOL [Suspect]
     Route: 048
     Dates: start: 20060228, end: 20060228

REACTIONS (5)
  - ANOREXIA [None]
  - ASTHENIA [None]
  - COMA [None]
  - DEATH [None]
  - HEADACHE [None]
